FAERS Safety Report 16687635 (Version 1)
Quarter: 2019Q3

REPORT INFORMATION
  Report Type: Spontaneous
  Country: US (occurrence: US)
  Receive Date: 20190809
  Receipt Date: 20190809
  Transmission Date: 20191004
  Serious: Yes (Other)
  Sender: FDA-Public Use
  Company Number: US-009507513-1908USA000270

PATIENT
  Sex: Male

DRUGS (1)
  1. REMERON [Suspect]
     Active Substance: MIRTAZAPINE
     Indication: SLEEP DISORDER THERAPY
     Dosage: AS NEEDED, ORAL TABLET
     Route: 048
     Dates: start: 2001

REACTIONS (3)
  - Pollakiuria [Not Recovered/Not Resolved]
  - Product use in unapproved indication [Unknown]
  - Angina pectoris [Not Recovered/Not Resolved]

NARRATIVE: CASE EVENT DATE: 2001
